FAERS Safety Report 24725068 (Version 1)
Quarter: 2024Q4

REPORT INFORMATION
  Report Type: Spontaneous
  Country: DE (occurrence: DE)
  Receive Date: 20241212
  Receipt Date: 20241212
  Transmission Date: 20250115
  Serious: Yes (Hospitalization, Other)
  Sender: BRISTOL-MYERS SQUIBB COMPANY
  Company Number: DE-BRISTOL-MYERS SQUIBB COMPANY-2024-137676

PATIENT
  Sex: Female

DRUGS (4)
  1. ELIQUIS [Suspect]
     Active Substance: APIXABAN
     Indication: Atrial fibrillation
     Route: 048
     Dates: start: 202404
  2. BISOPROLOL [Concomitant]
     Active Substance: BISOPROLOL
     Indication: Product used for unknown indication
  3. CARICOL [Concomitant]
     Indication: Product used for unknown indication
  4. COLIBIOGEN [ESCHERICHIA COLI] [Concomitant]
     Indication: Product used for unknown indication

REACTIONS (10)
  - Dizziness [Unknown]
  - Inflammatory marker increased [Unknown]
  - Cystitis [Unknown]
  - C-reactive protein abnormal [Unknown]
  - Asthenia [Unknown]
  - Tooth infection [Unknown]
  - Abdominal pain [Unknown]
  - Infection [Unknown]
  - Cardiac disorder [Unknown]
  - Gastrointestinal inflammation [Unknown]
